FAERS Safety Report 11073401 (Version 2)
Quarter: 2015Q2

REPORT INFORMATION
  Report Type: Report from Study
  Country: US (occurrence: US)
  Receive Date: 20150428
  Receipt Date: 20150507
  Transmission Date: 20150821
  Serious: Yes (Death, Hospitalization, Other)
  Sender: FDA-Public Use
  Company Number: US-BAYER-2015-160134

PATIENT
  Age: 41 Year
  Sex: Female

DRUGS (1)
  1. STIVARGA [Suspect]
     Active Substance: REGORAFENIB
     Indication: COLON CANCER
     Dosage: 160 MG DAILY X 21 DAYS
     Route: 048
     Dates: start: 20140202

REACTIONS (5)
  - Oral mucosal blistering [None]
  - Decreased appetite [None]
  - Dehydration [None]
  - Dysphonia [None]
  - Death [Fatal]

NARRATIVE: CASE EVENT DATE: 20150422
